FAERS Safety Report 20367162 (Version 1)
Quarter: 2022Q1

REPORT INFORMATION
  Report Type: Spontaneous
  Country: US (occurrence: US)
  Receive Date: 20220123
  Receipt Date: 20220123
  Transmission Date: 20220423
  Serious: No
  Sender: FDA-Public Use
  Company Number: US-AMGEN-USASP2022006270

PATIENT
  Age: 45 Year
  Sex: Female

DRUGS (16)
  1. AIMOVIG [Suspect]
     Active Substance: ERENUMAB-AOOE
     Indication: Central pain syndrome
     Dosage: UNK
     Route: 065
  2. AIMOVIG [Suspect]
     Active Substance: ERENUMAB-AOOE
     Indication: Off label use
  3. INDOCIN [Concomitant]
     Active Substance: INDOMETHACIN
  4. FLEXERIL [Concomitant]
     Active Substance: CYCLOBENZAPRINE HYDROCHLORIDE
  5. LAMICTAL [Concomitant]
     Active Substance: LAMOTRIGINE
  6. GABAPENTIN [Concomitant]
     Active Substance: GABAPENTIN
  7. TRILEPTAL [Concomitant]
     Active Substance: OXCARBAZEPINE
  8. BOTOX [Concomitant]
     Active Substance: ONABOTULINUMTOXINA
  9. LYRICA [Concomitant]
     Active Substance: PREGABALIN
  10. INDERAL [Concomitant]
     Active Substance: PROPRANOLOL HYDROCHLORIDE
  11. BUSPAR [Concomitant]
     Active Substance: BUSPIRONE HYDROCHLORIDE
  12. SEROQUEL [Concomitant]
     Active Substance: QUETIAPINE FUMARATE
  13. HYDROXYZINE [Concomitant]
     Active Substance: HYDROXYZINE HYDROCHLORIDE
  14. CANNABIS SATIVA SUBSP. INDICA TOP [Concomitant]
     Active Substance: CANNABIS SATIVA SUBSP. INDICA TOP
  15. UBRELVY [Concomitant]
     Active Substance: UBROGEPANT
  16. BACLOFEN [Concomitant]
     Active Substance: BACLOFEN

REACTIONS (9)
  - Off label use [Unknown]
  - Feeling abnormal [Unknown]
  - Muscle twitching [Unknown]
  - Hypoaesthesia [Unknown]
  - Speech disorder [Unknown]
  - Pruritus [Unknown]
  - Adverse event [Unknown]
  - Feeling hot [Unknown]
  - Feeling cold [Unknown]
